FAERS Safety Report 4750853-2 (Version None)
Quarter: 2005Q3

REPORT INFORMATION
  Report Type: 
  Country: None (occurrence: None)
  Receive Date: 20050822
  Receipt Date: 20050810
  Transmission Date: 20060218
  Serious: Yes (Other)
  Sender: FDA-Public Use
  Company Number: 2005113755

PATIENT
  Age: 51 Year
  Sex: Female
  Weight: 84.369 kg

DRUGS (9)
  1. LIPITOR [Suspect]
     Indication: BLOOD CHOLESTEROL INCREASED
     Dates: start: 20040201, end: 20041101
  2. HUMULIN N [Concomitant]
  3. HUMALOG [Concomitant]
  4. VERAPAMIL [Concomitant]
  5. LISINOPRIL [Concomitant]
  6. HYDROCHLOROTHIAZIDE (IHYDROCHLOROTHIAZIDE) [Concomitant]
  7. PREVACID [Concomitant]
  8. EFFEXOR XR [Concomitant]
  9. COMBIVENT [Concomitant]

REACTIONS (6)
  - ASTHENIA [None]
  - BLOOD GLUCOSE INCREASED [None]
  - GASTROINTESTINAL DISORDER [None]
  - MOVEMENT DISORDER [None]
  - PAIN IN EXTREMITY [None]
  - PROTEIN URINE PRESENT [None]
